FAERS Safety Report 11135728 (Version 4)
Quarter: 2015Q3

REPORT INFORMATION
  Report Type: Spontaneous
  Country: PT (occurrence: PT)
  Receive Date: 20150526
  Receipt Date: 20150707
  Transmission Date: 20151125
  Serious: Yes (Other)
  Sender: FDA-Public Use
  Company Number: PT-BIOMARINAP-PT-2015-106438

PATIENT
  Age: 16 Year
  Sex: Female
  Weight: 38.7 kg

DRUGS (5)
  1. MONTELUKAST [Concomitant]
     Active Substance: MONTELUKAST SODIUM
     Indication: PRODUCT USED FOR UNKNOWN INDICATION
     Dosage: 10 MG, UNK
     Route: 048
  2. VIMIZIM [Suspect]
     Active Substance: ELOSULFASE ALFA
     Indication: MUCOPOLYSACCHARIDOSIS IV
     Dosage: 60 MG, QW
     Route: 042
     Dates: start: 201112
  3. HYDROXYZINE [Concomitant]
     Active Substance: HYDROXYZINE\HYDROXYZINE HYDROCHLORIDE
     Indication: ALLERGY PROPHYLAXIS
     Dosage: 25 MG, SINGLE
     Route: 048
  4. RANITIDINE [Concomitant]
     Active Substance: RANITIDINE\RANITIDINE HYDROCHLORIDE
     Indication: PROPHYLAXIS AGAINST GASTROINTESTINAL ULCER
     Dosage: 150 MG, SINGLE
     Route: 048
  5. LORATADINE. [Concomitant]
     Active Substance: LORATADINE
     Indication: ALLERGY PROPHYLAXIS
     Dosage: UNK
     Route: 048

REACTIONS (3)
  - Chest pain [Recovered/Resolved]
  - Bronchospasm [Recovered/Resolved]
  - Salivary hypersecretion [Recovered/Resolved]

NARRATIVE: CASE EVENT DATE: 20150521
